FAERS Safety Report 20937877 (Version 4)
Quarter: 2022Q3

REPORT INFORMATION
  Report Type: Report from Study
  Country: US (occurrence: US)
  Receive Date: 20220609
  Receipt Date: 20220816
  Transmission Date: 20221027
  Serious: Yes (Hospitalization, Other)
  Sender: FDA-Public Use
  Company Number: US-TAKEDA-2022TUS037259

PATIENT
  Age: 71 Year
  Sex: Female

DRUGS (29)
  1. TEDUGLUTIDE [Suspect]
     Active Substance: TEDUGLUTIDE
     Indication: Short-bowel syndrome
     Dosage: 2.91 MILLIGRAM, QD
     Route: 042
     Dates: start: 20180216, end: 20190110
  2. TEDUGLUTIDE [Suspect]
     Active Substance: TEDUGLUTIDE
     Indication: Short-bowel syndrome
     Dosage: 2.91 MILLIGRAM, QD
     Route: 042
     Dates: start: 20180216, end: 20190110
  3. TEDUGLUTIDE [Suspect]
     Active Substance: TEDUGLUTIDE
     Indication: Short-bowel syndrome
     Dosage: 2.91 MILLIGRAM, QD
     Route: 042
     Dates: start: 20180216, end: 20190110
  4. TEDUGLUTIDE [Suspect]
     Active Substance: TEDUGLUTIDE
     Indication: Short-bowel syndrome
     Dosage: 2.91 MILLIGRAM, QD
     Route: 042
     Dates: start: 20180216, end: 20190110
  5. NICODERM CQ [Concomitant]
     Active Substance: NICOTINE
     Indication: Tobacco abuse
     Dosage: 7 MILLIGRAM, QD
     Route: 062
     Dates: start: 20211026, end: 20211111
  6. NICOTINE [Concomitant]
     Active Substance: NICOTINE
     Indication: Tobacco abuse
     Dosage: 4 MILLIGRAM
     Route: 048
     Dates: start: 20200714
  7. CHOLECALCIFEROL [Concomitant]
     Active Substance: CHOLECALCIFEROL
     Indication: Vitamin D deficiency
     Dosage: UNK UNK, QD
     Route: 048
     Dates: start: 20210610
  8. CALCIUM CITRATE\VITAMIN D [Concomitant]
     Active Substance: CALCIUM CITRATE\VITAMIN D
     Indication: Calcium deficiency
     Dosage: 30 MILLILITER, BID
     Route: 048
     Dates: start: 20220121
  9. OCTREOTIDE [Concomitant]
     Active Substance: OCTREOTIDE
     Indication: Diarrhoea
     Dosage: 50 MILLIGRAM, TID
     Route: 058
     Dates: start: 20220601
  10. ERGOCALCIFEROL [Concomitant]
     Active Substance: ERGOCALCIFEROL
     Indication: Vitamin D deficiency
     Dosage: 1.25 MILLIGRAM, 1/WEEK
     Route: 048
     Dates: start: 20210610
  11. ALBUTEROL [Concomitant]
     Active Substance: ALBUTEROL
     Indication: Chronic obstructive pulmonary disease
     Dosage: 90 MICROGRAM
     Route: 050
     Dates: start: 20151116
  12. CEFTRIAXONE [Concomitant]
     Active Substance: CEFTRIAXONE
     Indication: Poor venous access
     Dosage: 400 MILLILITER, QD
     Route: 042
     Dates: start: 20180323
  13. CYANOCOBALAMIN [Concomitant]
     Active Substance: CYANOCOBALAMIN
     Dosage: 6 MILLILITER
     Route: 030
     Dates: start: 20170306
  14. LOPERAMIDE [Concomitant]
     Active Substance: LOPERAMIDE
     Indication: Diarrhoea
     Dosage: 2 MILLIGRAM
     Route: 048
     Dates: start: 20170818
  15. MAGNESIUM LACTATE [Concomitant]
     Active Substance: MAGNESIUM LACTATE
     Indication: Magnesium deficiency
     Dosage: 84 MILLIGRAM
     Route: 048
     Dates: start: 20180103
  16. PANTOPRAZOLE [Concomitant]
     Active Substance: PANTOPRAZOLE
     Indication: Gastrooesophageal reflux disease
     Dosage: 40 MILLIGRAM, QD
     Route: 048
     Dates: start: 20180124
  17. VANCOMYCIN [Concomitant]
     Active Substance: VANCOMYCIN
     Indication: Catheter site infection
     Dosage: 800 MILLILITER
     Route: 042
     Dates: start: 20180322
  18. VANCOMYCIN [Concomitant]
     Active Substance: VANCOMYCIN
     Indication: Prophylaxis
     Dosage: 1250 MILLIGRAM
     Route: 042
     Dates: start: 20190711, end: 20190713
  19. VITAMIN D3 [Concomitant]
     Active Substance: CHOLECALCIFEROL
     Indication: Vitamin D deficiency
     Dosage: UNK UNK, QD
     Route: 048
     Dates: start: 20180216, end: 20190716
  20. SODIUM CHLORIDE [Concomitant]
     Active Substance: SODIUM CHLORIDE
     Indication: Short-bowel syndrome
     Dosage: 4000 MILLIGRAM
     Route: 042
     Dates: start: 20180322
  21. VASOPRESSIN [Concomitant]
     Active Substance: VASOPRESSIN
     Indication: Hypotension
     Dosage: UNK
     Route: 042
     Dates: start: 20190711, end: 20190712
  22. NOREPINEPHRINE [Concomitant]
     Active Substance: NOREPINEPHRINE
     Indication: Hypotension
     Dosage: 4 MILLIGRAM
     Route: 042
     Dates: start: 20190711, end: 20190713
  23. PIPERACILLIN SODIUM\TAZOBACTAM SODIUM [Concomitant]
     Active Substance: PIPERACILLIN SODIUM\TAZOBACTAM SODIUM
     Indication: Prophylaxis
     Dosage: 4.5 GRAM, TID
     Route: 042
     Dates: start: 20190711, end: 20190714
  24. OXYCODONE [Concomitant]
     Active Substance: OXYCODONE
     Indication: Abdominal pain
     Dosage: 5 MILLIGRAM
     Route: 048
     Dates: start: 20190712, end: 20190718
  25. BENADRYL [Concomitant]
     Active Substance: DIPHENHYDRAMINE HYDROCHLORIDE
     Indication: Dermatitis
     Dosage: 25 MILLIGRAM
     Route: 048
     Dates: start: 20190715, end: 20190715
  26. EUCERIN UREA [Concomitant]
     Indication: Catheter site dermatitis
     Dosage: UNK
     Route: 062
     Dates: start: 20190715, end: 20190715
  27. MIRTAZAPINE [Concomitant]
     Active Substance: MIRTAZAPINE
     Indication: Antidepressant therapy
     Dosage: 15 MILLIGRAM, QD
     Route: 048
     Dates: start: 20220209
  28. ATROPINE\DIPHENOXYLATE [Concomitant]
     Active Substance: ATROPINE\DIPHENOXYLATE
     Indication: Diarrhoea
     Dosage: 2.50 MILLIGRAM, QID
     Route: 048
     Dates: start: 20220121, end: 20220326
  29. CALCITRIOL [Concomitant]
     Active Substance: CALCITRIOL
     Indication: Vitamin D deficiency
     Dosage: 0.25 MICROGRAM, QD
     Route: 048
     Dates: start: 20210426

REACTIONS (3)
  - Device related sepsis [Recovered/Resolved]
  - Pneumonia klebsiella [Recovered/Resolved]
  - Acinetobacter infection [Recovered/Resolved]

NARRATIVE: CASE EVENT DATE: 20220323
